FAERS Safety Report 24829708 (Version 1)
Quarter: 2025Q1

REPORT INFORMATION
  Report Type: Report from Study
  Country: IN (occurrence: IN)
  Receive Date: 20250110
  Receipt Date: 20250110
  Transmission Date: 20250408
  Serious: Yes (Death, Hospitalization, Other)
  Sender: CIPLA
  Company Number: IN-CIPLA LTD.-2024IN15672

PATIENT

DRUGS (18)
  1. ACYCLOVIR [Suspect]
     Active Substance: ACYCLOVIR
     Indication: Varicella
     Dosage: 22.5 TABLET (10MG/KG/ DOSE), 1/4TH TABVLET FOR 3 TIMES A DAY (100 MG TDS) VIA ORAL
     Route: 048
     Dates: start: 20241017, end: 20241226
  2. CLOGEN [Concomitant]
     Indication: Product used for unknown indication
     Route: 065
     Dates: start: 20241003, end: 20241210
  3. ELORES [Concomitant]
     Indication: Product used for unknown indication
     Route: 065
     Dates: start: 20241208, end: 20241210
  4. SULFAMETHOXAZOLE\TRIMETHOPRIM [Concomitant]
     Active Substance: SULFAMETHOXAZOLE\TRIMETHOPRIM
     Indication: Product used for unknown indication
     Route: 065
     Dates: start: 20241017, end: 20241226
  5. SULFAMETHOXAZOLE\TRIMETHOPRIM [Concomitant]
     Active Substance: SULFAMETHOXAZOLE\TRIMETHOPRIM
     Route: 065
     Dates: start: 20241208, end: 20241226
  6. CLINDAMYCIN [Concomitant]
     Active Substance: CLINDAMYCIN
     Indication: Product used for unknown indication
     Route: 065
     Dates: start: 20241208, end: 20241212
  7. PANTOPRAZOLE SODIUM [Concomitant]
     Active Substance: PANTOPRAZOLE SODIUM
     Indication: Product used for unknown indication
     Route: 065
     Dates: start: 20241208, end: 20241220
  8. FLUVIR [Concomitant]
     Indication: Product used for unknown indication
     Route: 065
     Dates: start: 20241211, end: 20241223
  9. AVIBACTAM SODIUM\CEFTAZIDIME [Concomitant]
     Active Substance: AVIBACTAM SODIUM\CEFTAZIDIME
     Indication: Product used for unknown indication
     Dates: start: 20241211, end: 20241223
  10. VORICONAZOLE [Concomitant]
     Active Substance: VORICONAZOLE
     Indication: Product used for unknown indication
     Route: 065
     Dates: start: 20241211, end: 20241218
  11. TIGECYCLINE [Concomitant]
     Active Substance: TIGECYCLINE
     Indication: Product used for unknown indication
     Route: 065
     Dates: start: 20241211, end: 20241218
  12. HYDROCORT [HYDROCORTISONE] [Concomitant]
     Indication: Product used for unknown indication
     Route: 065
     Dates: start: 20241212, end: 20241222
  13. AZTREONAM [Concomitant]
     Active Substance: AZTREONAM
     Indication: Product used for unknown indication
     Route: 065
     Dates: start: 20241212, end: 20241224
  14. SULBACTAM [Concomitant]
     Active Substance: SULBACTAM
     Indication: Product used for unknown indication
     Route: 065
     Dates: start: 20241212, end: 20241226
  15. POLYMYXIN [Concomitant]
     Active Substance: POLYMYXIN
     Indication: Product used for unknown indication
     Route: 065
     Dates: start: 20241213, end: 20241226
  16. ACETAMINOPHEN [Concomitant]
     Active Substance: ACETAMINOPHEN
     Indication: Product used for unknown indication
     Route: 065
     Dates: start: 20241220, end: 20241226
  17. MINOCYCLINE [Concomitant]
     Active Substance: MINOCYCLINE HYDROCHLORIDE
     Indication: Product used for unknown indication
     Route: 065
     Dates: start: 20241225, end: 20241226
  18. LEVETIRACETAM [Concomitant]
     Active Substance: LEVETIRACETAM
     Indication: Product used for unknown indication
     Route: 065
     Dates: start: 20241224, end: 20241226

REACTIONS (2)
  - Sepsis [Fatal]
  - Septic cardiomyopathy [Fatal]
